FAERS Safety Report 25414179 (Version 2)
Quarter: 2025Q2

REPORT INFORMATION
  Report Type: Report from Study
  Country: US (occurrence: US)
  Receive Date: 20250609
  Receipt Date: 20250630
  Transmission Date: 20250716
  Serious: Yes (Hospitalization, Disabling, Other)
  Sender: ABBVIE
  Company Number: US-ABBVIE-6317553

PATIENT
  Age: 48 Year
  Sex: Female
  Weight: 79 kg

DRUGS (1)
  1. LINZESS [Suspect]
     Active Substance: LINACLOTIDE
     Indication: Bowel movement irregularity
     Dosage: FORM STRENGTH: 290 MG
     Route: 048
     Dates: start: 2012

REACTIONS (9)
  - Fall [Unknown]
  - Epilepsy [Recovering/Resolving]
  - Nervous system disorder [Unknown]
  - Head injury [Unknown]
  - Cerebral haemorrhage [Recovering/Resolving]
  - Meningitis fungal [Unknown]
  - Skull fracture [Recovering/Resolving]
  - Cauda equina syndrome [Unknown]
  - Dyschezia [Unknown]

NARRATIVE: CASE EVENT DATE: 20120101
